FAERS Safety Report 7450024-5 (Version None)
Quarter: 2011Q2

REPORT INFORMATION
  Report Type: 
  Country: None (occurrence: None)
  Receive Date: 20110502
  Receipt Date: 20091113
  Transmission Date: 20111010
  Serious: Yes (Other)
  Sender: FDA-Public Use
  Company Number: US-BAYER-200939380NA

PATIENT
  Age: 56 Year
  Sex: Male
  Weight: 90.703 kg

DRUGS (16)
  1. HEPARIN [Concomitant]
     Dosage: UNK
     Dates: start: 20040418
  2. PAPAVERINE HCL [Concomitant]
     Dosage: UNK
     Dates: start: 20040418
  3. ATIVAN [Concomitant]
     Dosage: .5 MG, QID
  4. IMITREX [Concomitant]
     Dosage: UNK UNK, PRN
  5. NADOLOL [Concomitant]
     Dosage: 40 MG, HS
  6. SULFASALAZINE [Concomitant]
     Dosage: 100 MG, TID
  7. TRICOR [Concomitant]
     Dosage: 160 MG, QD
  8. TRASYLOL [Suspect]
     Indication: CORONARY ARTERY BYPASS
     Dosage: 100 ML, X2
     Route: 042
     Dates: start: 20040418, end: 20040418
  9. APROTININ [Concomitant]
     Dosage: 100 ML, X2
     Dates: start: 20040418
  10. GENTAMICIN [Concomitant]
     Dosage: UNK
     Dates: start: 20040418
  11. THROMBIN LOCAL SOLUTION [Concomitant]
     Dosage: UNK
     Dates: start: 20040418
  12. VANCOMYCIN [Concomitant]
     Dosage: UNK
     Dates: start: 20040418
  13. PLASMA [Concomitant]
     Dosage: UNK
     Dates: start: 20040418
  14. DONNATAL [Concomitant]
     Dosage: 1 TAB, QID
  15. NAPROXEN [Concomitant]
     Dosage: UNK UNK, PRN
  16. VISIPAQUE [Concomitant]
     Dosage: 136 ML, UNK
     Dates: start: 20040418

REACTIONS (12)
  - RENAL FAILURE [None]
  - INJURY [None]
  - UNEVALUABLE EVENT [None]
  - ANXIETY [None]
  - PAIN [None]
  - MYOCARDIAL INFARCTION [None]
  - HEART INJURY [None]
  - EMOTIONAL DISTRESS [None]
  - STRESS [None]
  - FEAR [None]
  - ANHEDONIA [None]
  - DEPRESSION [None]
